FAERS Safety Report 22596122 (Version 2)
Quarter: 2023Q2

REPORT INFORMATION
  Report Type: Spontaneous
  Country: CN (occurrence: CN)
  Receive Date: 20230613
  Receipt Date: 20230615
  Transmission Date: 20230722
  Serious: Yes (Life-Threatening, Hospitalization)
  Sender: FDA-Public Use
  Company Number: CN-ELI_LILLY_AND_COMPANY-CN202306004578

PATIENT
  Age: 13 Year
  Sex: Female
  Weight: 62 kg

DRUGS (4)
  1. OLANZAPINE [Suspect]
     Active Substance: OLANZAPINE
     Indication: Completed suicide
     Dosage: 30 MG, DAILY
     Route: 030
     Dates: start: 20230510, end: 20230510
  2. LORAZEPAM [Suspect]
     Active Substance: LORAZEPAM
     Indication: Completed suicide
     Dosage: 30 MG, DAILY
     Route: 048
     Dates: start: 20230510, end: 20230510
  3. QUETIAPINE FUMARATE [Suspect]
     Active Substance: QUETIAPINE FUMARATE
     Indication: Completed suicide
     Dosage: 700 MG, DAILY
     Route: 048
     Dates: start: 20230510, end: 20230510
  4. SERTRALINE HYDROCHLORIDE [Suspect]
     Active Substance: SERTRALINE HYDROCHLORIDE
     Indication: Product used for unknown indication
     Dosage: 700 MG, DAILY
     Route: 048
     Dates: start: 20230510, end: 20230510

REACTIONS (7)
  - Suicide attempt [Unknown]
  - Coma [Unknown]
  - Vomiting [Unknown]
  - Choking [Unknown]
  - Loss of consciousness [Recovering/Resolving]
  - Intentional overdose [Unknown]
  - Off label use [Unknown]

NARRATIVE: CASE EVENT DATE: 20230510
